FAERS Safety Report 16103253 (Version 2)
Quarter: 2019Q2

REPORT INFORMATION
  Report Type: Report from Study
  Country: JP (occurrence: JP)
  Receive Date: 20190322
  Receipt Date: 20190516
  Transmission Date: 20190711
  Serious: Yes (Hospitalization, Other)
  Sender: FDA-Public Use
  Company Number: JP-AMGEN-JPNCT2019017187

PATIENT
  Age: 81 Year
  Sex: Female

DRUGS (23)
  1. DARBEPOETIN ALFA [Suspect]
     Active Substance: DARBEPOETIN ALFA
     Dosage: 240 MICROGRAM, Q2WK
     Route: 058
     Dates: start: 20160303, end: 20160526
  2. DARBEPOETIN ALFA [Suspect]
     Active Substance: DARBEPOETIN ALFA
     Dosage: 240 MICROGRAM, Q2WK
     Route: 058
     Dates: start: 20160707, end: 20160901
  3. DARBEPOETIN ALFA [Suspect]
     Active Substance: DARBEPOETIN ALFA
     Dosage: 240 MICROGRAM, Q3WK
     Route: 058
     Dates: start: 20170328, end: 20170711
  4. DARBEPOETIN ALFA [Suspect]
     Active Substance: DARBEPOETIN ALFA
     Dosage: 240 MICROGRAM, Q4WK
     Route: 058
     Dates: start: 20170822, end: 20171114
  5. DARBEPOETIN ALFA [Suspect]
     Active Substance: DARBEPOETIN ALFA
     Dosage: 240 MICROGRAM, Q4WK
     Route: 058
     Dates: start: 20180710
  6. ACTOS [Concomitant]
     Active Substance: PIOGLITAZONE HYDROCHLORIDE
     Indication: DIABETES MELLITUS
     Dosage: UNK
     Route: 048
     Dates: end: 20170521
  7. METHYCOBAL [Concomitant]
     Active Substance: METHYLCOBALAMIN
     Indication: SCIATICA
     Dosage: UNK
     Route: 048
     Dates: end: 20160901
  8. LYRICA [Concomitant]
     Active Substance: PREGABALIN
     Indication: SCIATICA
     Dosage: UNK
     Route: 048
     Dates: end: 20160901
  9. LASIX [Concomitant]
     Active Substance: FUROSEMIDE
     Indication: CARDIAC FAILURE
     Dosage: UNK
     Route: 048
     Dates: end: 20170821
  10. METGLUCO [Concomitant]
     Active Substance: METFORMIN HYDROCHLORIDE
     Indication: DIABETES MELLITUS
     Dosage: UNK
     Route: 048
  11. DARBEPOETIN ALFA [Suspect]
     Active Substance: DARBEPOETIN ALFA
     Dosage: 240 MICROGRAM, QWK
     Route: 058
     Dates: start: 20161018, end: 20161025
  12. DARBEPOETIN ALFA [Suspect]
     Active Substance: DARBEPOETIN ALFA
     Dosage: 240 MICROGRAM, Q3WK
     Route: 058
     Dates: start: 20180521, end: 20180612
  13. PARIET [Concomitant]
     Active Substance: RABEPRAZOLE SODIUM
     Indication: GASTROOESOPHAGEAL REFLUX DISEASE
     Dosage: UNK
     Route: 048
  14. KINEDAK [Concomitant]
     Active Substance: EPALRESTAT
     Indication: DIABETES MELLITUS
     Dosage: UNK
     Route: 048
  15. DARBEPOETIN ALFA [Suspect]
     Active Substance: DARBEPOETIN ALFA
     Dosage: 240 MICROGRAM
     Route: 058
     Dates: start: 20160616, end: 20160616
  16. DARBEPOETIN ALFA [Suspect]
     Active Substance: DARBEPOETIN ALFA
     Dosage: 240 MICROGRAM, Q2WK
     Route: 058
     Dates: start: 20161108, end: 20161220
  17. DARBEPOETIN ALFA [Suspect]
     Active Substance: DARBEPOETIN ALFA
     Dosage: 240 MICROGRAM, Q2WK
     Route: 058
     Dates: start: 20161227, end: 20170307
  18. AMARYL [Concomitant]
     Active Substance: GLIMEPIRIDE
     Indication: DIABETES MELLITUS
     Dosage: UNK
     Route: 048
     Dates: end: 20170615
  19. EQUA [Concomitant]
     Active Substance: VILDAGLIPTIN
     Indication: DIABETES MELLITUS
     Dosage: UNK
     Route: 048
  20. LIVALO [Concomitant]
     Active Substance: PITAVASTATIN CALCIUM
     Indication: HYPERLIPIDAEMIA
     Dosage: UNK
     Route: 048
  21. DARBEPOETIN ALFA [Suspect]
     Active Substance: DARBEPOETIN ALFA
     Indication: MYELODYSPLASTIC SYNDROME
     Dosage: 240 MICROGRAM, QWK
     Route: 058
     Dates: start: 20160107, end: 20160218
  22. DARBEPOETIN ALFA [Suspect]
     Active Substance: DARBEPOETIN ALFA
     Dosage: 240 MICROGRAM
     Route: 058
     Dates: start: 20160929, end: 20160929
  23. DARBEPOETIN ALFA [Suspect]
     Active Substance: DARBEPOETIN ALFA
     Dosage: 240 MICROGRAM, Q2WK
     Route: 058
     Dates: start: 20171128, end: 20180501

REACTIONS (2)
  - Bile duct stone [Not Recovered/Not Resolved]
  - Cholangitis acute [Recovering/Resolving]

NARRATIVE: CASE EVENT DATE: 20180617
